FAERS Safety Report 12908825 (Version 1)
Quarter: 2016Q4

REPORT INFORMATION
  Report Type: Spontaneous
  Country: US (occurrence: US)
  Receive Date: 20161103
  Receipt Date: 20161103
  Transmission Date: 20170207
  Serious: Yes (Hospitalization)
  Sender: FDA-Public Use
  Company Number: US-BEH-2016074648

PATIENT
  Sex: Female

DRUGS (3)
  1. HIZENTRA [Suspect]
     Active Substance: HUMAN IMMUNOGLOBULIN G
     Indication: PRODUCT USED FOR UNKNOWN INDICATION
     Dosage: UNK
     Route: 065
  2. HUMIRA [Suspect]
     Active Substance: ADALIMUMAB
     Indication: BEHCET^S SYNDROME
  3. APREMILAST [Concomitant]
     Active Substance: APREMILAST
     Indication: BEHCET^S SYNDROME

REACTIONS (4)
  - Peripheral swelling [Unknown]
  - Glucose tolerance impaired [Unknown]
  - Weight increased [Unknown]
  - Adrenal disorder [Unknown]
